FAERS Safety Report 17588343 (Version 1)
Quarter: 2020Q1

REPORT INFORMATION
  Report Type: Spontaneous
  Country: US (occurrence: US)
  Receive Date: 20200326
  Receipt Date: 20200326
  Transmission Date: 20200409
  Serious: No
  Sender: FDA-Public Use
  Company Number: US-VIFOR (INTERNATIONAL) INC.-VIT-2020-04337

PATIENT
  Sex: Male

DRUGS (12)
  1. VELTASSA [Suspect]
     Active Substance: PATIROMER
     Indication: BLOOD POTASSIUM INCREASED
     Route: 048
     Dates: start: 2018
  2. INSULIN [Concomitant]
     Active Substance: INSULIN NOS
  3. DOXAZOSIN [Concomitant]
     Active Substance: DOXAZOSIN MESYLATE
  4. SODIUM BICARBONATE. [Concomitant]
     Active Substance: SODIUM BICARBONATE
  5. FUSION PLUS [Concomitant]
     Active Substance: IRON\VITAMIN B
  6. CALCITRIOL. [Concomitant]
     Active Substance: CALCITRIOL
  7. FUROSEMIDE. [Concomitant]
     Active Substance: FUROSEMIDE
  8. VELTASSA [Suspect]
     Active Substance: PATIROMER
     Route: 048
  9. VELTASSA [Suspect]
     Active Substance: PATIROMER
     Route: 048
     Dates: start: 2019
  10. ATORVASTATIN [Concomitant]
     Active Substance: ATORVASTATIN
  11. CARVEDILOL. [Concomitant]
     Active Substance: CARVEDILOL
  12. RAMIPRIL. [Concomitant]
     Active Substance: RAMIPRIL

REACTIONS (2)
  - No adverse event [Unknown]
  - Inappropriate schedule of product administration [Unknown]

NARRATIVE: CASE EVENT DATE: 2018
